FAERS Safety Report 4416615-0 (Version None)
Quarter: 2004Q2

REPORT INFORMATION
  Report Type: 
  Country: None (occurrence: None)
  Receive Date: 20040630
  Receipt Date: 20040421
  Transmission Date: 20050107
  Serious: Yes (Hospitalization)
  Sender: FDA-Public Use
  Company Number: 04P-163-0258178-00

PATIENT
  Age: 47 Year
  Sex: Male
  Weight: 104.3273 kg

DRUGS (13)
  1. HUMIRA [Suspect]
     Indication: RHEUMATOID ARTHRITIS
     Dosage: 40 MG, 1 IN 2 WK, SUBCUTANEOUS
     Route: 058
     Dates: start: 20040205, end: 20040322
  2. PREDNISONE [Concomitant]
  3. METHOTREXATE SODIUM [Concomitant]
  4. FUROSEMIDE [Concomitant]
  5. VENLAFAXINE HCL [Concomitant]
  6. AMITRIPTYLINE HYDROCHLORIDE [Concomitant]
  7. VERAPAMIL [Concomitant]
  8. OMEPRAZOLE [Concomitant]
  9. RANITIDINE HYDROCHLORIDE [Concomitant]
  10. FOLIC ACID [Concomitant]
  11. LAROTABE [Concomitant]
  12. CARISOPRODOL [Concomitant]
  13. DIAZEPAM [Concomitant]

REACTIONS (13)
  - ARTHRALGIA [None]
  - COUGH [None]
  - DYSPNOEA [None]
  - HEADACHE [None]
  - HEART RATE [None]
  - HEART RATE INCREASED [None]
  - HYPERSOMNIA [None]
  - HYPERTENSION [None]
  - INFLUENZA [None]
  - MUSCULOSKELETAL STIFFNESS [None]
  - PHARYNGOLARYNGEAL PAIN [None]
  - SINUS CONGESTION [None]
  - SWELLING [None]
